FAERS Safety Report 14884662 (Version 1)
Quarter: 2018Q2

REPORT INFORMATION
  Report Type: Spontaneous
  Country: US (occurrence: US)
  Receive Date: 20180511
  Receipt Date: 20180511
  Transmission Date: 20180711
  Serious: Yes (Other)
  Sender: FDA-Public Use
  Company Number: US-MYLANLABS-2018M1031040

PATIENT
  Sex: Female

DRUGS (2)
  1. LEVOTHYROXINE MYLAN [Suspect]
     Active Substance: LEVOTHYROXINE
     Indication: PRODUCT USED FOR UNKNOWN INDICATION
     Dosage: UNK
     Dates: start: 2000
  2. LEVOTHYROXINE MYLAN [Suspect]
     Active Substance: LEVOTHYROXINE
     Dosage: UNK  (DECREASED TO 25 MCG)

REACTIONS (2)
  - Hyperthyroidism [Unknown]
  - Thyroid mass [Unknown]

NARRATIVE: CASE EVENT DATE: 201705
